FAERS Safety Report 8492421-5 (Version None)
Quarter: 2012Q3

REPORT INFORMATION
  Report Type: 
  Country: None (occurrence: None)
  Receive Date: 20120706
  Receipt Date: 20120621
  Transmission Date: 20120928
  Serious: Yes (Hospitalization, Other)
  Sender: FDA-Public Use
  Company Number: CN-ROCHE-1072679

PATIENT
  Age: 31 Year
  Sex: Female
  Weight: 54 kg

DRUGS (5)
  1. AVASTIN [Suspect]
     Indication: LUNG ADENOCARCINOMA
     Route: 041
     Dates: start: 20110701, end: 20120301
  2. PACLITAXEL [Concomitant]
     Indication: LUNG ADENOCARCINOMA
     Dates: start: 20110701, end: 20120101
  3. DEXAMETHASONE (NON-ROCHE/NON-COMPARATOR) [Concomitant]
     Indication: LUNG ADENOCARCINOMA
     Dates: start: 20110701, end: 20111201
  4. CARBOPLATIN [Concomitant]
     Indication: LUNG ADENOCARCINOMA
     Route: 041
     Dates: start: 20110701, end: 20120101
  5. TARCEVA [Suspect]
     Indication: LUNG ADENOCARCINOMA
     Route: 048
     Dates: start: 20120418

REACTIONS (13)
  - HEADACHE [None]
  - VOMITING [None]
  - BLOOD ALKALINE PHOSPHATASE INCREASED [None]
  - ANAL ABSCESS [None]
  - DIZZINESS [None]
  - METASTASES TO CENTRAL NERVOUS SYSTEM [None]
  - LACUNAR INFARCTION [None]
  - AMENORRHOEA [None]
  - DIPLOPIA [None]
  - RASH [None]
  - ASTHENIA [None]
  - ARTHRALGIA [None]
  - NAUSEA [None]
